FAERS Safety Report 6575541-1 (Version None)
Quarter: 2010Q1

REPORT INFORMATION
  Report Type: 
  Country: None (occurrence: None)
  Receive Date: 20100209
  Receipt Date: 20100204
  Transmission Date: 20100710
  Serious: Yes (Life-Threatening, Hospitalization, Disabling, Other)
  Sender: FDA-Public Use
  Company Number: US-BAYER-200943210NA

PATIENT
  Age: 72 Year
  Sex: Female
  Weight: 56 kg

DRUGS (9)
  1. SORAFENIB [Suspect]
     Indication: HEPATIC NEOPLASM MALIGNANT
     Dosage: TOTAL DAILY DOSE: 400 MG  UNIT DOSE: 200 MG
     Route: 048
     Dates: start: 20091101, end: 20091215
  2. SORAFENIB [Suspect]
     Dosage: TOTAL DAILY DOSE: 800 MG  UNIT DOSE: 200 MG
     Route: 048
     Dates: start: 20090921, end: 20091101
  3. CANDESARTAN CILEXETIL [Concomitant]
     Dosage: TOTAL DAILY DOSE: 16 MG
     Route: 048
  4. CIPROFLOXACIN HCL [Concomitant]
     Dosage: TOTAL DAILY DOSE: 500 MG  UNIT DOSE: 250 MG
     Route: 048
  5. LANSOPRAZOLE [Concomitant]
     Dosage: TOTAL DAILY DOSE: 30 MG
     Route: 048
  6. HYDROCHLOROTHIAZIDE [Concomitant]
     Dosage: TOTAL DAILY DOSE: 25 MG
     Route: 048
  7. ASPIRIN [Concomitant]
     Dosage: TOTAL DAILY DOSE: 81 MG
     Route: 048
  8. ASCORBIC ACID [Concomitant]
     Dosage: TOTAL DAILY DOSE: 500 MG
     Route: 048
  9. MAGNESIUM [Concomitant]
     Dosage: TOTAL DAILY DOSE: 100 MG

REACTIONS (2)
  - FATIGUE [None]
  - HYPOKALAEMIA [None]
